FAERS Safety Report 5820120-4 (Version None)
Quarter: 2008Q2

REPORT INFORMATION
  Report Type: 
  Country: None (occurrence: None)
  Receive Date: 20080624
  Receipt Date: 20080624
  Transmission Date: 20081010
  Serious: Yes (Hospitalization)
  Sender: FDA-Public Use
  Company Number: None

PATIENT
  Sex: Female
  Weight: 92.9874 kg

DRUGS (3)
  1. HEPARIN LOCK-FLUSH [Suspect]
     Indication: INDWELLING CATHETER MANAGEMENT
     Dosage: 2 DOSES 3ML 2 TIMES A DAY IV
     Route: 042
     Dates: start: 20080617
  2. SODIUM CHLORIDE INJ [Suspect]
  3. CUBICIN [Suspect]

REACTIONS (6)
  - BLOOD PRESSURE DIASTOLIC DECREASED [None]
  - BURNING SENSATION [None]
  - CHILLS [None]
  - FEELING HOT [None]
  - NAUSEA [None]
  - TREMOR [None]
